FAERS Safety Report 8882008 (Version 4)
Quarter: 2013Q3

REPORT INFORMATION
  Report Type: Spontaneous
  Country: BR (occurrence: BR)
  Receive Date: 20121102
  Receipt Date: 20130819
  Transmission Date: 20140515
  Serious: Yes (Other)
  Sender: FDA-Public Use
  Company Number: BR-ROCHE-1151370

PATIENT
  Sex: Female
  Weight: 43.5 kg

DRUGS (4)
  1. PEGASYS [Suspect]
     Indication: HEPATITIS C
     Route: 065
     Dates: start: 20120124, end: 20130604
  2. RIBAVIRIN [Suspect]
     Indication: HEPATITIS C
     Dosage: 2 TABLTES IN MORNING AND 1 IN EVENING
     Route: 065
     Dates: start: 20120124, end: 20130604
  3. GRANULOKINE [Suspect]
     Indication: WHITE BLOOD CELL COUNT INCREASED
     Route: 065
  4. FORASEQ [Concomitant]
     Indication: ASTHMA
     Route: 065

REACTIONS (13)
  - Neutrophil count decreased [Recovered/Resolved]
  - White blood cell count decreased [Not Recovered/Not Resolved]
  - White blood cell disorder [Not Recovered/Not Resolved]
  - Anaemia [Recovered/Resolved]
  - Nervousness [Unknown]
  - Headache [Not Recovered/Not Resolved]
  - Red blood cell count decreased [Not Recovered/Not Resolved]
  - Transaminases decreased [Not Recovered/Not Resolved]
  - Blood test abnormal [Not Recovered/Not Resolved]
  - Blood cholesterol decreased [Unknown]
  - Drug ineffective [Unknown]
  - Tremor [Unknown]
  - Euphoric mood [Unknown]
